FAERS Safety Report 9633857 (Version 3)
Quarter: 2013Q4

REPORT INFORMATION
  Report Type: Report from Study
  Country: US (occurrence: US)
  Receive Date: 20131021
  Receipt Date: 20131223
  Transmission Date: 20140711
  Serious: Yes (Death, Other)
  Sender: FDA-Public Use
  Company Number: US-ABBVIE-13P-163-1158894-00

PATIENT
  Age: 94 Year
  Sex: Female

DRUGS (3)
  1. HUMIRA [Suspect]
     Indication: RHEUMATOID ARTHRITIS
  2. UNKNOWN MEDICATION [Concomitant]
     Indication: HYPERTENSION
     Dates: end: 20130123
  3. UNKNOWN MEDICATION [Concomitant]
     Indication: PRODUCT USED FOR UNKNOWN INDICATION
     Route: 047
     Dates: end: 20120123

REACTIONS (5)
  - Aortic aneurysm rupture [Fatal]
  - Localised infection [Recovered/Resolved]
  - Road traffic accident [Recovered/Resolved]
  - Breast cancer [Unknown]
  - Psoriasis [Unknown]
